FAERS Safety Report 6429173-6 (Version None)
Quarter: 2009Q4

REPORT INFORMATION
  Report Type: 
  Country: None (occurrence: None)
  Receive Date: 20091105
  Receipt Date: 20091029
  Transmission Date: 20100525
  Serious: Yes (Hospitalization)
  Sender: FDA-Public Use
  Company Number: DE-ABBOTT-09P-062-0565410-00

PATIENT
  Age: 76 Year
  Sex: Female
  Weight: 60 kg

DRUGS (10)
  1. KLACID FORTE [Suspect]
     Indication: PNEUMONIA
     Route: 042
     Dates: start: 20090226, end: 20090304
  2. CEFTRIAXONE (ROCEPHIN) (NON-ABBOTT) [Suspect]
     Indication: PNEUMONIA
     Dosage: IT WAS NOT REPORTED IF 1 OR 2 GRAM UNIT WAS GIVEN
     Route: 042
     Dates: start: 20090223, end: 20090303
  3. ALLOPURINOL [Concomitant]
     Indication: HYPERURICAEMIA
     Route: 048
     Dates: start: 20030101
  4. ASPIRIN [Concomitant]
     Indication: THROMBOSIS PROPHYLAXIS
     Route: 048
  5. VALSARTAN [Concomitant]
     Indication: HYPERTENSION
     Route: 048
  6. AMLODIPINE W/VALSARTAN [Concomitant]
     Indication: HYPERTENSION
     Dosage: 5/8 MG PER UNIT
     Route: 048
  7. FOLIC ACID [Concomitant]
     Indication: FOLATE DEFICIENCY
     Route: 048
     Dates: start: 20090201
  8. LEVETIRACETAM [Concomitant]
     Indication: EPILEPSY
     Route: 048
     Dates: start: 20090222
  9. TIOTROPIUM BROMIDE [Concomitant]
     Indication: CHRONIC OBSTRUCTIVE PULMONARY DISEASE
     Route: 055
  10. FLUTICASONE PROPIONATE W/SALMETEROL XINAFOATE [Concomitant]
     Indication: ASTHMA
     Dosage: 50/20MG PER UNIT
     Route: 055

REACTIONS (3)
  - CLOSTRIDIUM DIFFICILE COLITIS [None]
  - DEHYDRATION [None]
  - EPILEPSY [None]
